FAERS Safety Report 16461777 (Version 1)
Quarter: 2019Q2

REPORT INFORMATION
  Report Type: Spontaneous
  Country: CN (occurrence: CN)
  Receive Date: 20190621
  Receipt Date: 20190621
  Transmission Date: 20190711
  Serious: Yes (Hospitalization, Other)
  Sender: FDA-Public Use
  Company Number: CN-GLAXOSMITHKLINE-CN2019APC107371

PATIENT

DRUGS (2)
  1. LAMICTAL [Suspect]
     Active Substance: LAMOTRIGINE
     Indication: EPILEPTIC PSYCHOSIS
     Dosage: 50 MG, UNK
     Route: 048
     Dates: start: 20190319, end: 20190404
  2. ARIPIPRAZOLE. [Concomitant]
     Active Substance: ARIPIPRAZOLE
     Indication: EPILEPTIC PSYCHOSIS
     Dosage: 2.50 MG, BID
     Route: 048
     Dates: start: 20190325, end: 20190401

REACTIONS (6)
  - Mucocutaneous rash [Unknown]
  - Rash generalised [Unknown]
  - Seizure [Unknown]
  - Eyelid rash [Unknown]
  - Rash [Unknown]
  - Impulsive behaviour [Unknown]

NARRATIVE: CASE EVENT DATE: 20190401
